FAERS Safety Report 8365626-1 (Version None)
Quarter: 2012Q2

REPORT INFORMATION
  Report Type: 
  Country: None (occurrence: None)
  Receive Date: 20120516
  Receipt Date: 20120511
  Transmission Date: 20120825
  Serious: Yes (Disabling)
  Sender: FDA-Public Use
  Company Number: US-MERCK-1205USA02103

PATIENT
  Sex: Male

DRUGS (3)
  1. FOSAMAX PLUS D [Suspect]
     Route: 048
     Dates: start: 20011101, end: 20080601
  2. FOSAMAX [Suspect]
     Route: 048
     Dates: start: 20011101, end: 20080601
  3. FOSAMAX [Suspect]
     Route: 048
     Dates: start: 20011101, end: 20080601

REACTIONS (4)
  - FEMUR FRACTURE [None]
  - OSTEOPOROSIS [None]
  - STRESS FRACTURE [None]
  - LOW TURNOVER OSTEOPATHY [None]
